FAERS Safety Report 4772619-X (Version None)
Quarter: 2005Q3

REPORT INFORMATION
  Report Type: 
  Country: None (occurrence: None)
  Receive Date: 20050919
  Receipt Date: 20050908
  Transmission Date: 20060218
  Serious: Yes (Disabling)
  Sender: FDA-Public Use
  Company Number: 200512031DE

PATIENT
  Age: 62 Year
  Sex: Male
  Weight: 79 kg

DRUGS (7)
  1. DOCETAXEL [Suspect]
     Indication: NON-SMALL CELL LUNG CANCER
     Route: 042
     Dates: start: 20050818, end: 20050818
  2. STUDY MEDICATION NOT GIVEN [Suspect]
  3. CARBOPLATIN [Suspect]
     Indication: NON-SMALL CELL LUNG CANCER
     Route: 042
     Dates: start: 20050818, end: 20050818
  4. FORTECORTIN [Concomitant]
     Indication: VOMITING
     Route: 042
     Dates: start: 20050817, end: 20050819
  5. ZOFRAN [Concomitant]
     Indication: VOMITING
     Route: 042
     Dates: start: 20050818, end: 20050818
  6. ACC [Concomitant]
     Route: 048
     Dates: start: 20050811, end: 20050818
  7. AVELOX [Concomitant]
     Indication: INFECTION
     Dates: start: 20050811

REACTIONS (1)
  - LEUKOCYTOCLASTIC VASCULITIS [None]
